FAERS Safety Report 4379843-9 (Version None)
Quarter: 2004Q2

REPORT INFORMATION
  Report Type: 
  Country: None (occurrence: None)
  Receive Date: 20040614
  Receipt Date: 20040528
  Transmission Date: 20050107
  Serious: Yes (Hospitalization)
  Sender: FDA-Public Use
  Company Number: 6009037

PATIENT
  Age: 80 Year
  Sex: Male

DRUGS (5)
  1. ENALAPRIL GENERICS(TABLET) (ENALAPRIL) [Suspect]
     Indication: CARDIAC FAILURE CONGESTIVE
     Dosage: ORAL
     Route: 048
     Dates: start: 20030429
  2. ALDACTONE [Concomitant]
  3. ASPIRIN [Concomitant]
  4. LANOXIN [Concomitant]
  5. BUMETANIDE [Concomitant]

REACTIONS (10)
  - CARDIAC FAILURE [None]
  - CARDIOMEGALY [None]
  - CHOLECYSTITIS [None]
  - CHRONIC OBSTRUCTIVE AIRWAYS DISEASE [None]
  - CONDITION AGGRAVATED [None]
  - OEDEMA PERIPHERAL [None]
  - ORGAN FAILURE [None]
  - PULMONARY VASCULAR DISORDER [None]
  - SEPSIS [None]
  - TREATMENT NONCOMPLIANCE [None]
